FAERS Safety Report 19145132 (Version 4)
Quarter: 2024Q1

REPORT INFORMATION
  Report Type: Report from Study
  Country: IT (occurrence: IT)
  Receive Date: 20210416
  Receipt Date: 20240326
  Transmission Date: 20240409
  Serious: Yes (Other)
  Sender: FDA-Public Use
  Company Number: IT-CELLTRION INC.-2021IT004647

PATIENT

DRUGS (12)
  1. RITUXIMAB [Suspect]
     Active Substance: RITUXIMAB
     Indication: Retroperitoneal fibrosis
     Dosage: 1500 MG/M2 EVERY WEEK (375 MG/M2, 375MG/M2- 4 WEEKLY RITUXIMAB), ROUTE: {INFUSION}/ 375MG/M2- 4 WEEK
     Route: 065
  2. RITUXIMAB [Suspect]
     Active Substance: RITUXIMAB
     Dosage: 500 MG, EVERY 6 MONTHS
     Route: 041
  3. RITUXIMAB [Suspect]
     Active Substance: RITUXIMAB
     Dosage: 375 MG/M2, EVERY 4 WEEKS  ROUTE: {INFUSION}
     Route: 042
  4. RITUXIMAB [Suspect]
     Active Substance: RITUXIMAB
     Dosage: 375MG/M2- 4 WEEKLY RITUXIMAB PLUS TWO MORE DOSES OF RITUXIMAB 1 AND 2 MONTHS FOLLOWING THE LAST W...
     Route: 050
  5. METHYLPREDNISOLONE [Suspect]
     Active Substance: METHYLPREDNISOLONE
     Indication: Retroperitoneal fibrosis
     Dosage: 15 MG/KG, 3 PULSES/3 PULSES OF 15MG/KG METHYLPREDNISOLONE
     Route: 042
  6. METHYLPREDNISOLONE [Suspect]
     Active Substance: METHYLPREDNISOLONE
     Indication: Immunosuppressant drug therapy
  7. PREDNISONE [Suspect]
     Active Substance: PREDNISONE
     Indication: Retroperitoneal fibrosis
     Dosage: 0.8 MG/KG, QD
     Route: 048
  8. PREDNISONE [Suspect]
     Active Substance: PREDNISONE
     Indication: Immunosuppressant drug therapy
     Dosage: UNK, GRADUALLY TAPERED UNTIL DISCONTINUATION IN 4 MONTHS
     Route: 048
  9. PREDNISONE [Suspect]
     Active Substance: PREDNISONE
     Dosage: .8 MG/KG DAILY; GRADUALLY TAPERED UNTIL DISCONTINUATION IN 4 MONTHS
     Route: 048
  10. CYCLOPHOSPHAMIDE [Suspect]
     Active Substance: CYCLOPHOSPHAMIDE
     Indication: Retroperitoneal fibrosis
     Dosage: 500-750 MG ON DAY 1 AND 15- 2 PULSES/2 PULSES OF 500-750 MG CYCLOPHOSPHAMIDE ON DAYS 1 AND 15
     Route: 042
  11. CYCLOPHOSPHAMIDE [Suspect]
     Active Substance: CYCLOPHOSPHAMIDE
     Indication: Immunosuppressant drug therapy
     Dosage: 750 MG (2 PULSES OF 500-750 MG ON DAYS 1 AND 15)
     Route: 042
  12. CYCLOPHOSPHAMIDE [Suspect]
     Active Substance: CYCLOPHOSPHAMIDE
     Dosage: 750 MG, QD (500-750 MG, QD)
     Route: 065

REACTIONS (6)
  - Retroperitoneal fibrosis [Unknown]
  - Disease recurrence [Unknown]
  - Pneumonia [Unknown]
  - Intentional product use issue [Unknown]
  - Off label use [Unknown]
  - Intentional product use issue [Unknown]
